FAERS Safety Report 10220587 (Version 3)
Quarter: 2014Q3

REPORT INFORMATION
  Report Type: Spontaneous
  Country: US (occurrence: None)
  Receive Date: 20140604
  Receipt Date: 20140716
  Transmission Date: 20150326
  Serious: Yes (Death, Hospitalization)
  Sender: FDA-Public Use
  Company Number: UNT-2014-001072

PATIENT
  Age: 68 Year
  Sex: Male
  Weight: 105.2 kg

DRUGS (22)
  1. VITAMIN D /00107901/ (ERGOCALCIFEROL) [Concomitant]
  2. ADVAIR DISKUS (FLUTICASONE PROPIONATE, SALMETEROL XINAFOATE) [Concomitant]
  3. REVATIO (SILDENAFIL CITRATE) [Concomitant]
  4. MUCINEX (GUAIFENESIN) [Concomitant]
  5. AMBIEN [Concomitant]
     Active Substance: ZOLPIDEM TARTRATE
  6. FLUCONAZOLE (FLUCONAZOLE) [Concomitant]
     Active Substance: FLUCONAZOLE
  7. AMLODIPINE BESYLATE (AMLODIPINE BESILATE) [Concomitant]
     Active Substance: AMLODIPINE BESYLATE
  8. GNP FLAX SEED OIL (LINUM USITATISSIMUM SEED OIL) [Concomitant]
  9. FUROSEMIDE (FUROSEMIDE) [Concomitant]
     Active Substance: FUROSEMIDE
  10. DIAZEPAM (DIAZEPAM) [Concomitant]
     Active Substance: DIAZEPAM
  11. PRAVASTATIN SODIUM (PRAVASTATIN SODIUM) [Concomitant]
  12. DUONEB (IPRATROPIUM BROMIDE, SALBUTAMOL SULFATE) [Concomitant]
  13. OXYGEN (OXYGEN) [Concomitant]
     Active Substance: OXYGEN
  14. SALINE /00075401/ (SODIUM CHLORIDE) [Concomitant]
  15. ASPIRIN (ACETYLSALICYLIC ACID) [Concomitant]
     Active Substance: ASPIRIN
  16. LASIX [Concomitant]
     Active Substance: FUROSEMIDE
  17. PRILOSEC /006612101/ (OMEPRAZOLE) [Concomitant]
  18. TYVASO [Suspect]
     Active Substance: TREPROSTINIL
     Indication: PULMONARY ARTERIAL HYPERTENSION
     Dosage: 18-54 MCG, QID, INHALATION
     Route: 055
     Dates: start: 20131129
  19. TYVASO [Suspect]
     Active Substance: TREPROSTINIL
     Indication: PULMONARY HYPERTENSION
     Dosage: 18-54 MCG, QID, INHALATION
     Route: 055
     Dates: start: 20131129
  20. METOPROLOL TARTRATE (METOPROLOL TARTRATE) [Concomitant]
  21. FISH-EPA (DOCOSAHEAENOIC ACID, EICOSAPENTAENOIC ACID) [Concomitant]
  22. VENLAFAXINE HCL [Concomitant]
     Active Substance: VENLAFAXINE HYDROCHLORIDE

REACTIONS (4)
  - Death [None]
  - Respiratory failure [None]
  - Pleural effusion [None]
  - Atelectasis [None]

NARRATIVE: CASE EVENT DATE: 20140511
